FAERS Safety Report 7518098-0 (Version None)
Quarter: 2011Q2

REPORT INFORMATION
  Report Type: 
  Country: None (occurrence: None)
  Receive Date: 20110531
  Receipt Date: 20110531
  Transmission Date: 20111010
  Serious: No
  Sender: FDA-Public Use
  Company Number: None

PATIENT
  Sex: Male

DRUGS (1)
  1. ENBREL [Suspect]
     Indication: RHEUMATOID ARTHRITIS
     Dosage: 50MG SQ QW
     Route: 058
     Dates: start: 20110414, end: 20110506

REACTIONS (3)
  - LETHARGY [None]
  - ABDOMINAL PAIN UPPER [None]
  - DIZZINESS [None]
